FAERS Safety Report 6678823-8 (Version None)
Quarter: 2010Q2

REPORT INFORMATION
  Report Type: 
  Country: None (occurrence: None)
  Receive Date: 20100412
  Receipt Date: 20100412
  Transmission Date: 20101027
  Serious: Yes (Death, Hospitalization, Other)
  Sender: FDA-Public Use
  Company Number: None

PATIENT

DRUGS (4)
  1. RECLAST [Suspect]
     Indication: OSTEOPOROSIS
     Dates: start: 20091008, end: 20091008
  2. PLAQUENIL [Concomitant]
  3. REMICADE [Suspect]
  4. ADVIL [Concomitant]

REACTIONS (1)
  - RENAL FAILURE [None]
